FAERS Safety Report 8322139-0 (Version None)
Quarter: 2012Q2

REPORT INFORMATION
  Report Type: 
  Country: None (occurrence: None)
  Receive Date: 20120427
  Receipt Date: 20120419
  Transmission Date: 20120825
  Serious: Yes (Hospitalization)
  Sender: FDA-Public Use
  Company Number: 2011SP053215

PATIENT
  Age: 59 Year
  Sex: Male
  Weight: 56 kg

DRUGS (12)
  1. CRESTOR [Concomitant]
  2. TERCIAN [Concomitant]
  3. EFFEXOR [Concomitant]
  4. BOCEPREVIR [Suspect]
     Indication: HEPATITIS C
     Dosage: 800 MG;TID;
     Dates: start: 20110927
  5. TROSPIUM CHLORIDE [Concomitant]
  6. TRUVADA [Concomitant]
  7. ASPIRIN [Concomitant]
  8. VIRAFERONPEG [Suspect]
     Indication: HEPATITIS C
     Dosage: 80 MCG;QW;
     Dates: start: 20110825
  9. REBETOL [Suspect]
     Indication: HEPATITIS C
     Dosage: 800 MG;QD;
     Dates: start: 20110825
  10. ISENTRESS [Concomitant]
  11. ATENOLOL [Concomitant]
  12. OMEXEL [Concomitant]

REACTIONS (14)
  - HAEMOGLOBIN DECREASED [None]
  - ASTHENIA [None]
  - WHITE BLOOD CELL COUNT DECREASED [None]
  - HEPATITIS C [None]
  - HYPOTENSION [None]
  - URINARY INCONTINENCE [None]
  - MUSCULAR WEAKNESS [None]
  - ANAEMIA MACROCYTIC [None]
  - PROTEUS TEST POSITIVE [None]
  - URINARY TRACT INFECTION [None]
  - DECREASED APPETITE [None]
  - GAIT DISTURBANCE [None]
  - WEIGHT DECREASED [None]
  - DISEASE RECURRENCE [None]
